FAERS Safety Report 7529696-2 (Version None)
Quarter: 2011Q2

REPORT INFORMATION
  Report Type: 
  Country: None (occurrence: None)
  Receive Date: 20110607
  Receipt Date: 20110530
  Transmission Date: 20111010
  Serious: Yes (Other)
  Sender: FDA-Public Use
  Company Number: B0669039A

PATIENT
  Age: 33 Year
  Sex: Male

DRUGS (2)
  1. VIRAMUNE [Concomitant]
  2. ABACAVIR SULFATE AND LAMIVUDINE [Suspect]
     Indication: ACQUIRED IMMUNODEFICIENCY SYNDROME
     Route: 065
     Dates: start: 20100601

REACTIONS (4)
  - NEUTROPENIA [None]
  - LEUKOPENIA [None]
  - GINGIVITIS [None]
  - OROPHARYNGEAL PAIN [None]
